FAERS Safety Report 21336968 (Version 2)
Quarter: 2022Q3

REPORT INFORMATION
  Report Type: Spontaneous
  Country: US (occurrence: US)
  Receive Date: 20220915
  Receipt Date: 20220921
  Transmission Date: 20221026
  Serious: No
  Sender: FDA-Public Use
  Company Number: US-PFIZER INC-202201091157

PATIENT
  Age: 64 Year
  Sex: Female
  Weight: 90.703 kg

DRUGS (4)
  1. PAXLOVID [Suspect]
     Active Substance: NIRMATRELVIR\RITONAVIR
     Indication: COVID-19 treatment
     Dosage: [PF-07321332 300 MG]/[RITONAVIR 100 MG]; 2X/DAY
     Dates: start: 20220727, end: 20220729
  2. LISINOPRIL [Concomitant]
     Active Substance: LISINOPRIL
     Dosage: UNK, 6 YEARS
     Dates: start: 2017
  3. ROSUVASTATIN [Concomitant]
     Active Substance: ROSUVASTATIN
     Dosage: UNK, 5 YEARS
     Dates: start: 2018
  4. CELECOXIB [Concomitant]
     Active Substance: CELECOXIB
     Dosage: UNK, 10 YEARS
     Dates: start: 2013

REACTIONS (8)
  - Anxiety [Recovered/Resolved]
  - Nervousness [Recovered/Resolved]
  - Depression [Recovered/Resolved]
  - Feeling of despair [Recovered/Resolved]
  - Thinking abnormal [Recovered/Resolved]
  - Dysgeusia [Recovered/Resolved]
  - Nightmare [Recovered/Resolved]
  - Sleep terror [Unknown]

NARRATIVE: CASE EVENT DATE: 20220701
